FAERS Safety Report 22693058 (Version 2)
Quarter: 2024Q3

REPORT INFORMATION
  Report Type: Spontaneous
  Country: US (occurrence: US)
  Receive Date: 20230711
  Receipt Date: 20240722
  Transmission Date: 20241017
  Serious: No
  Sender: ASTELLAS
  Company Number: US-ASTELLAS-2022US044437

PATIENT
  Age: 75 Year
  Sex: Male

DRUGS (2)
  1. MYRBETRIQ [Suspect]
     Active Substance: MIRABEGRON
     Indication: Hypertonic bladder
     Route: 065
     Dates: start: 202211
  2. PREDNISONE [Suspect]
     Active Substance: PREDNISONE
     Indication: Myasthenia gravis
     Route: 065
     Dates: start: 2013

REACTIONS (9)
  - Burning sensation [Unknown]
  - Skin discolouration [Unknown]
  - Skin wrinkling [Unknown]
  - Skin laceration [Unknown]
  - Contusion [Unknown]
  - Skin atrophy [Unknown]
  - Sensitive skin [Unknown]
  - Pain of skin [Unknown]
  - Therapeutic product effect variable [Unknown]

NARRATIVE: CASE EVENT DATE: 20221101
